FAERS Safety Report 7375922-2 (Version None)
Quarter: 2011Q1

REPORT INFORMATION
  Report Type: 
  Country: None (occurrence: None)
  Receive Date: 20110325
  Receipt Date: 20110308
  Transmission Date: 20110831
  Serious: Yes (Hospitalization, Other)
  Sender: FDA-Public Use
  Company Number: B0708487A

PATIENT
  Sex: Male

DRUGS (1)
  1. DIGOXIN [Suspect]
     Indication: ATRIAL FIBRILLATION
     Dosage: 32U PER DAY
     Route: 048
     Dates: start: 20101207, end: 20101210

REACTIONS (5)
  - ATRIOVENTRICULAR BLOCK [None]
  - POISONING [None]
  - VOMITING [None]
  - BRADYCARDIA [None]
  - NAUSEA [None]
